FAERS Safety Report 7989893-9 (Version None)
Quarter: 2011Q4

REPORT INFORMATION
  Report Type: 
  Country: None (occurrence: None)
  Receive Date: 20111219
  Receipt Date: 20110323
  Transmission Date: 20120403
  Serious: No
  Sender: FDA-Public Use
  Company Number: US-ASTRAZENECA-2011SE16627

PATIENT
  Age: 55 Year
  Sex: Female

DRUGS (5)
  1. CRESTOR [Suspect]
     Dosage: 5 MG
     Route: 048
  2. ASPIRIN [Concomitant]
  3. CRESTOR [Suspect]
     Dosage: 10 MG
     Route: 048
  4. TECHTUMA [Concomitant]
  5. LEXAPRO [Concomitant]

REACTIONS (1)
  - PHOTODERMATOSIS [None]
